FAERS Safety Report 16006237 (Version 4)
Quarter: 2019Q1

REPORT INFORMATION
  Report Type: Spontaneous
  Country: FR (occurrence: FR)
  Receive Date: 20190226
  Receipt Date: 20190319
  Transmission Date: 20190418
  Serious: Yes (Other)
  Sender: FDA-Public Use
  Company Number: FR-LUNDBECK-DKLU2061000

PATIENT
  Age: 33 Year
  Sex: Male

DRUGS (3)
  1. URBANYL [Suspect]
     Active Substance: CLOBAZAM
     Dosage: 2 DAYS PER WEEK
     Route: 048
  2. URBANYL [Suspect]
     Active Substance: CLOBAZAM
     Indication: PRODUCT USED FOR UNKNOWN INDICATION
     Dosage: 3 DAYS PER WEEK
     Route: 048
  3. DEPAKINE [Concomitant]
     Active Substance: VALPROATE SODIUM
     Indication: EPILEPSY
     Route: 065

REACTIONS (9)
  - Seizure [Unknown]
  - Hypnotherapy [Recovered/Resolved]
  - Agitation [Recovered/Resolved]
  - Withdrawal syndrome [Unknown]
  - Somnolence [Unknown]
  - Hypotonia [Unknown]
  - Insomnia [Unknown]
  - Epilepsy [Unknown]
  - Off label use [Unknown]
